FAERS Safety Report 16907892 (Version 1)
Quarter: 2019Q4

REPORT INFORMATION
  Report Type: Spontaneous
  Country: US (occurrence: US)
  Receive Date: 20191010
  Receipt Date: 20191010
  Transmission Date: 20200122
  Serious: No
  Sender: FDA-Public Use
  Company Number: None

PATIENT
  Age: 19 Year
  Sex: Female
  Weight: 57.15 kg

DRUGS (3)
  1. BIOTIN [Concomitant]
     Active Substance: BIOTIN
  2. NEXPLANON [Suspect]
     Active Substance: ETONOGESTREL
     Dates: start: 20171220
  3. IBUPROFEN. [Concomitant]
     Active Substance: IBUPROFEN

REACTIONS (2)
  - Implant site hypoaesthesia [None]
  - Device inappropriate shock delivery [None]

NARRATIVE: CASE EVENT DATE: 20191010
